FAERS Safety Report 6719181-X (Version None)
Quarter: 2010Q2

REPORT INFORMATION
  Report Type: 
  Country: None (occurrence: None)
  Receive Date: 20100507
  Receipt Date: 20100423
  Transmission Date: 20101027
  Serious: Yes (Other)
  Sender: FDA-Public Use
  Company Number: 2010SCPR000576

PATIENT
  Age: 63 Year
  Sex: Female

DRUGS (1)
  1. TRAMADOL AND ACETAMINOPHEN (TRAMADOL HYDROCHLORIDE + ACETAMINOPHEN) TA [Suspect]
     Dosage: 1 DF, BID
     Dates: start: 20100413, end: 20100413

REACTIONS (7)
  - ASTHENIA [None]
  - CHEST PAIN [None]
  - DRUG INEFFECTIVE [None]
  - FATIGUE [None]
  - OROPHARYNGEAL PAIN [None]
  - VISION BLURRED [None]
  - VISUAL IMPAIRMENT [None]
